FAERS Safety Report 14742932 (Version 3)
Quarter: 2018Q2

REPORT INFORMATION
  Report Type: Report from Study
  Country: US (occurrence: US)
  Receive Date: 20180410
  Receipt Date: 20180625
  Transmission Date: 20180711
  Serious: Yes (Hospitalization)
  Sender: FDA-Public Use
  Company Number: US-ACTELION-A-NJ2017-157789

PATIENT
  Age: 64 Year
  Sex: Female
  Weight: 67.12 kg

DRUGS (5)
  1. UPTRAVI [Suspect]
     Active Substance: SELEXIPAG
     Indication: PULMONARY ARTERIAL HYPERTENSION
     Dosage: 1400 MCG, BID
     Route: 048
  2. UPTRAVI [Suspect]
     Active Substance: SELEXIPAG
     Dosage: 1200 MCG, QD
     Route: 048
  3. ADCIRCA [Concomitant]
     Active Substance: TADALAFIL
     Indication: PULMONARY ARTERIAL HYPERTENSION
     Dosage: 600 MCG, BID
     Route: 048
  4. LETAIRIS [Concomitant]
     Active Substance: AMBRISENTAN
  5. UPTRAVI [Suspect]
     Active Substance: SELEXIPAG
     Dosage: 600 MCG, BID
     Route: 048

REACTIONS (16)
  - Fluid retention [Unknown]
  - Abdominal distension [Unknown]
  - Hypotension [Unknown]
  - Headache [Unknown]
  - Gait disturbance [Unknown]
  - Rash [Recovering/Resolving]
  - Cardiac dysfunction [Unknown]
  - Hospice care [Unknown]
  - Therapy non-responder [Unknown]
  - Insomnia [Unknown]
  - Pulmonary arterial pressure increased [Unknown]
  - Pulmonary oedema [Unknown]
  - Malaise [Unknown]
  - Pain [Unknown]
  - Flatulence [Unknown]
  - Feeding disorder [Unknown]
